FAERS Safety Report 8320675-4 (Version None)
Quarter: 2012Q2

REPORT INFORMATION
  Report Type: 
  Country: None (occurrence: None)
  Receive Date: 20120430
  Receipt Date: 20120420
  Transmission Date: 20120825
  Serious: Yes (Hospitalization)
  Sender: FDA-Public Use
  Company Number: JP-PFIZER INC-2011233371

PATIENT
  Age: 60 Year
  Sex: Female

DRUGS (24)
  1. DOXORUBICIN HYDROCHLORIDE [Suspect]
     Dosage: 40 MG/M2 X 1/4WEEK
     Route: 041
     Dates: start: 20110824, end: 20110824
  2. KW-0761 [Suspect]
     Indication: ADULT T-CELL LYMPHOMA/LEUKAEMIA
     Dosage: 1 MG/M2, UNK
     Dates: start: 20110415, end: 20110415
  3. PREDNISOLONE [Suspect]
     Dosage: 40 MG/M2, UNK
     Route: 048
     Dates: start: 20110509, end: 20110509
  4. PREDNISOLONE [Suspect]
     Dosage: 10 MG/M2, UNK
     Route: 042
     Dates: start: 20110701
  5. PREDNISOLONE [Suspect]
     Dosage: 40 MG/M2, UNK
     Route: 048
     Dates: start: 20110516, end: 20110518
  6. CYMERIN [Suspect]
     Indication: ADULT T-CELL LYMPHOMA/LEUKAEMIA
     Dosage: 60 MG/M2 X 1/4 WEEK
     Route: 041
     Dates: start: 20110509, end: 20110509
  7. CYTARABINE [Suspect]
     Dosage: 40 MG/M2 X 1/4 WEEK
     Route: 037
     Dates: start: 20110703, end: 20110703
  8. FILDESIN [Suspect]
     Dosage: 1.8 MG/M2 X 1/4 WEEK
     Route: 042
     Dates: start: 20110914, end: 20110914
  9. DOXORUBICIN HYDROCHLORIDE [Suspect]
     Dosage: 30 MG/M2 X 1/4WEEK
     Route: 041
     Dates: start: 20110509, end: 20110509
  10. CYCLOPHOSPHAMIDE [Suspect]
     Indication: ADULT T-CELL LYMPHOMA/LEUKAEMIA
     Dosage: 350 MG/M2 X 1/4WEEK
     Route: 041
     Dates: start: 20110414, end: 20110414
  11. PARAPLATIN AQ [Suspect]
     Indication: ADULT T-CELL LYMPHOMA/LEUKAEMIA
     Dosage: 250 MG/M2 X 1/4 WEEK
     Route: 041
     Dates: start: 20110516, end: 20110516
  12. DOXORUBICIN HYDROCHLORIDE [Suspect]
     Dosage: 55 MG/M2 X 1/4WEEK
     Route: 041
     Dates: start: 20110817, end: 20110817
  13. KW-0761 [Suspect]
     Dosage: 1 MG/M2, UNK
     Dates: start: 20110514, end: 20110514
  14. ONCOVIN [Suspect]
     Indication: ADULT T-CELL LYMPHOMA/LEUKAEMIA
     Dosage: 1 MG/M2 X 1/4 WEEK
     Route: 042
     Dates: start: 20110414, end: 20110414
  15. ONCOVIN [Suspect]
     Dosage: 0.7 MG/M2 X 1/4 WEEK
     Route: 042
     Dates: start: 20110817, end: 20110817
  16. FILDESIN [Suspect]
     Indication: ADULT T-CELL LYMPHOMA/LEUKAEMIA
     Dosage: 2.4 MG/M2 X 1/4 WEEK
     Route: 042
     Dates: start: 20110516, end: 20110516
  17. ETOPOSIDE [Suspect]
     Dosage: 140 MG/M2 X 1/4 WEEK
     Route: 041
     Dates: start: 20110914, end: 20110914
  18. DOXORUBICIN HYDROCHLORIDE [Suspect]
     Indication: ADULT T-CELL LYMPHOMA/LEUKAEMIA
     Dosage: 40 MG/M2 X 1/4WEEK
     Route: 041
     Dates: start: 20110414, end: 20110414
  19. METHOTREXATE SODIUM [Suspect]
     Indication: ADULT T-CELL LYMPHOMA/LEUKAEMIA
     Dosage: 15 MG/M2 X 1/4 WEEK
     Route: 041
     Dates: start: 20110703, end: 20110703
  20. PREDNISOLONE [Suspect]
     Indication: ADULT T-CELL LYMPHOMA/LEUKAEMIA
     Dosage: 40 MG/M2, UNK
     Route: 048
     Dates: start: 20110414, end: 20110414
  21. ETOPOSIDE [Suspect]
     Indication: ADULT T-CELL LYMPHOMA/LEUKAEMIA
     Dosage: 100 MG/M2 X 1/4 WEEK
     Route: 041
     Dates: start: 20110516, end: 20110516
  22. PARAPLATIN AQ [Suspect]
     Dosage: 360 MG/M2 X 1/4 WEEK
     Route: 041
     Dates: start: 20110914, end: 20110914
  23. CYCLOPHOSPHAMIDE [Suspect]
     Dosage: 520 MG/M2 X 1/4WEEK
     Route: 041
     Dates: start: 20110817, end: 20110817
  24. CYMERIN [Suspect]
     Dosage: 80 MG/M2 X 1/4 WEEK
     Route: 041
     Dates: start: 20110824, end: 20110824

REACTIONS (3)
  - VIRAL HAEMORRHAGIC CYSTITIS [None]
  - ILEUS PARALYTIC [None]
  - CHOLECYSTITIS [None]
